FAERS Safety Report 9848016 (Version 3)
Quarter: 2014Q1

REPORT INFORMATION
  Report Type: Spontaneous
  Country: US (occurrence: US)
  Receive Date: 20140128
  Receipt Date: 20140217
  Transmission Date: 20141002
  Serious: Yes (Hospitalization)
  Sender: FDA-Public Use
  Company Number: US-DRREDDYS-USA/USA/14/0037447

PATIENT
  Age: 17 Year
  Sex: Female
  Weight: 81.72 kg

DRUGS (2)
  1. ZENATANE [Suspect]
     Indication: ACNE
     Route: 048
     Dates: start: 201309
  2. ZENATANE [Suspect]
     Route: 048
     Dates: start: 201310, end: 20140115

REACTIONS (14)
  - Arthralgia [Not Recovered/Not Resolved]
  - Back pain [Not Recovered/Not Resolved]
  - Nausea [Recovered/Resolved]
  - Blood glucose increased [Recovered/Resolved]
  - Hepatic enzyme increased [Unknown]
  - Vomiting [Recovered/Resolved]
  - Mood swings [Not Recovered/Not Resolved]
  - Asthenia [Not Recovered/Not Resolved]
  - Pallor [Not Recovered/Not Resolved]
  - Beta haemolytic streptococcal infection [Not Recovered/Not Resolved]
  - Sepsis [Not Recovered/Not Resolved]
  - Crying [Not Recovered/Not Resolved]
  - Aggression [Not Recovered/Not Resolved]
  - Anxiety [Not Recovered/Not Resolved]
